FAERS Safety Report 23713141 (Version 2)
Quarter: 2024Q2

REPORT INFORMATION
  Report Type: Spontaneous
  Country: JP (occurrence: JP)
  Receive Date: 20240405
  Receipt Date: 20240617
  Transmission Date: 20240716
  Serious: Yes (Hospitalization)
  Sender: FDA-Public Use
  Company Number: JP-RADIUS HEALTH, INC.-2024JP002198

PATIENT
  Age: 74 Year
  Sex: Female

DRUGS (4)
  1. ABALOPARATIDE [Suspect]
     Active Substance: ABALOPARATIDE
     Indication: Osteoporosis
     Dosage: 80 MICROGRAM
     Route: 058
     Dates: start: 20231226
  2. ELDECALCITOL [Concomitant]
     Active Substance: ELDECALCITOL
     Indication: Osteoporosis
     Dosage: 0.75 MICROGRAM/DAY
     Route: 048
     Dates: start: 202306
  3. MENATETRENONE [Concomitant]
     Active Substance: MENATETRENONE
     Indication: Osteoporosis
     Dosage: 45 MILLIGRAM/DAY
     Route: 048
     Dates: start: 202306
  4. LOXOPROFEN SODIUM [Concomitant]
     Active Substance: LOXOPROFEN SODIUM
     Indication: Myalgia
     Dosage: 100 MILLIGRAM/DAY
     Route: 061
     Dates: start: 202306

REACTIONS (1)
  - Loss of consciousness [Recovered/Resolved]

NARRATIVE: CASE EVENT DATE: 20240301
